FAERS Safety Report 8307634-2 (Version None)
Quarter: 2012Q2

REPORT INFORMATION
  Report Type: 
  Country: None (occurrence: None)
  Receive Date: 20120424
  Receipt Date: 20120419
  Transmission Date: 20120825
  Serious: Yes (Hospitalization)
  Sender: FDA-Public Use
  Company Number: US-B.I. PHARMACEUTICALS,INC./RIDGEFIELD-2012-BP-07493BP

PATIENT
  Age: 49 Year
  Sex: Female

DRUGS (5)
  1. PRADAXA [Suspect]
     Dosage: 150 MG
     Route: 048
     Dates: start: 20120330
  2. CELEXA [Concomitant]
     Indication: ANXIETY
     Dosage: 20 MG
     Route: 048
     Dates: start: 20100101
  3. ATIVAN [Concomitant]
     Indication: ANXIETY
     Dosage: 1 MG
     Route: 048
     Dates: start: 20100101
  4. MULTI-VITAMIN [Concomitant]
     Indication: VITAMIN SUPPLEMENTATION
     Route: 048
  5. PRADAXA [Suspect]
     Indication: ATRIAL FIBRILLATION
     Dosage: 300 MG
     Route: 048
     Dates: start: 20120201, end: 20120330

REACTIONS (3)
  - NAUSEA [None]
  - WEIGHT DECREASED [None]
  - VOMITING [None]
